FAERS Safety Report 23307388 (Version 2)
Quarter: 2023Q4

REPORT INFORMATION
  Report Type: Spontaneous
  Country: FR (occurrence: FR)
  Receive Date: 20231218
  Receipt Date: 20231231
  Transmission Date: 20240110
  Serious: Yes (Hospitalization, Other)
  Sender: FDA-Public Use
  Company Number: FR-AFSSAPS-AN2023001593

PATIENT
  Age: 60 Year
  Sex: Male

DRUGS (8)
  1. LEVOFLOXACIN [Suspect]
     Active Substance: LEVOFLOXACIN
     Indication: Stenotrophomonas infection
     Dosage: 1 GRAM, ONCE A DAY
     Route: 042
     Dates: start: 20231126
  2. MEROPENEM [Suspect]
     Active Substance: MEROPENEM
     Indication: Infection
     Dosage: UNK
     Route: 042
     Dates: start: 20231114, end: 20231128
  3. PANTOPRAZOLE [Suspect]
     Active Substance: PANTOPRAZOLE
     Indication: Infection
     Dosage: 40 MILLIGRAM, ONCE A DAY
     Route: 042
     Dates: start: 20231112, end: 20231206
  4. BACTRIM [Suspect]
     Active Substance: SULFAMETHOXAZOLE\TRIMETHOPRIM
     Indication: Stenotrophomonas infection
     Dosage: 3 DOSAGE FORM, ONCE A DAY
     Route: 042
     Dates: start: 20231126, end: 20231127
  5. IOMERON [Suspect]
     Active Substance: IOMEPROL
     Indication: Urogram
     Dosage: 1 MILLILITER (1 TOTAL)
     Route: 042
     Dates: start: 20231124, end: 20231124
  6. IOBITRIDOL [Suspect]
     Active Substance: IOBITRIDOL
     Indication: Computerised tomogram
     Dosage: 90 MILLILITER (1 TOTAL)
     Route: 042
     Dates: start: 20231112, end: 20231112
  7. IOBITRIDOL [Suspect]
     Active Substance: IOBITRIDOL
     Dosage: 90 MILLILITER (1 TOTAL)
     Route: 042
     Dates: start: 20231116, end: 20231116
  8. IOBITRIDOL [Suspect]
     Active Substance: IOBITRIDOL
     Dosage: 90 MILLILITER (1 TOTAL)
     Route: 042
     Dates: start: 20231123, end: 20231123

REACTIONS (1)
  - Toxic skin eruption [Recovered/Resolved]

NARRATIVE: CASE EVENT DATE: 20231127
